FAERS Safety Report 9664244 (Version 2)
Quarter: 2013Q4

REPORT INFORMATION
  Report Type: Spontaneous
  Country: CA (occurrence: CA)
  Receive Date: 20131101
  Receipt Date: 20131101
  Transmission Date: 20140711
  Serious: Yes (Other)
  Sender: FDA-Public Use
  Company Number: CA-SA-FABR-1003586

PATIENT
  Age: 54 Year
  Sex: Male
  Weight: 86.8 kg

DRUGS (8)
  1. FABRAZYME [Suspect]
     Indication: FABRY^S DISEASE
     Dosage: 90 MG, Q2W
     Route: 042
     Dates: start: 200710
  2. FLUTICASONE [Concomitant]
     Dosage: UNK
     Route: 065
  3. SALBUTAMOL [Concomitant]
     Dosage: UNK
     Route: 065
  4. PHENYTOIN [Concomitant]
     Dosage: UNK
     Route: 065
  5. TRIMEBUTINE [Concomitant]
     Dosage: UNK
     Route: 065
  6. ATORVASTATIN [Concomitant]
     Dosage: UNK
     Route: 065
  7. FOLIC ACID [Concomitant]
     Dosage: UNK
     Route: 065
  8. CLOPIDOGREL [Concomitant]
     Dosage: UNK
     Route: 065

REACTIONS (3)
  - Pulmonary congestion [Recovered/Resolved]
  - Ear infection [Recovered/Resolved]
  - Wheezing [Recovered/Resolved]
